FAERS Safety Report 20901885 (Version 1)
Quarter: 2022Q2

REPORT INFORMATION
  Report Type: Spontaneous
  Country: US (occurrence: US)
  Receive Date: 20220601
  Receipt Date: 20220601
  Transmission Date: 20220721
  Serious: Yes (Other)
  Sender: FDA-Public Use
  Company Number: US-AMGEN-USASP2022091160

PATIENT

DRUGS (2)
  1. BLINATUMOMAB [Suspect]
     Active Substance: BLINATUMOMAB
     Indication: Precursor B-lymphoblastic lymphoma
     Dosage: UNK
     Route: 065
  2. INOTUZUMAB OZOGAMICIN [Concomitant]
     Active Substance: INOTUZUMAB OZOGAMICIN

REACTIONS (3)
  - Acute lymphocytic leukaemia recurrent [Unknown]
  - Cytokine release syndrome [Unknown]
  - Lineage switch leukaemia [Unknown]
